FAERS Safety Report 4795431-4 (Version None)
Quarter: 2005Q3

REPORT INFORMATION
  Report Type: 
  Country: None (occurrence: None)
  Receive Date: 20050929
  Receipt Date: 20050726
  Transmission Date: 20060218
  Serious: No
  Sender: FDA-Public Use
  Company Number: 05P-163-0306721-00

PATIENT
  Age: 60 Year
  Sex: Female
  Weight: 114 kg

DRUGS (9)
  1. HUMIRA [Suspect]
     Indication: RHEUMATOID ARTHRITIS
     Dosage: 40 MG, 1 IN 2 WK, SUBCUTANEOUS
     Route: 058
     Dates: start: 20041101, end: 20050201
  2. METOPROLOL TARTRATE [Concomitant]
  3. ASPIRIN [Concomitant]
  4. GLIMEPIRIDE [Concomitant]
  5. ZOCOR [Concomitant]
  6. GEMFIBROZIL [Concomitant]
  7. FUROSEMIDE [Concomitant]
  8. SERETIDE MITE [Concomitant]
  9. PROVENTIL [Concomitant]

REACTIONS (1)
  - DRUG INEFFECTIVE [None]
